FAERS Safety Report 7669556-X (Version None)
Quarter: 2011Q3

REPORT INFORMATION
  Report Type: 
  Country: None (occurrence: None)
  Receive Date: 20110808
  Receipt Date: 20110801
  Transmission Date: 20111222
  Serious: Yes (Hospitalization)
  Sender: FDA-Public Use
  Company Number: IE-BRISTOL-MYERS SQUIBB COMPANY-15938418

PATIENT
  Age: 71 Year
  Sex: Male

DRUGS (4)
  1. OLANZAPINE [Suspect]
     Indication: ACUTE PSYCHOSIS
  2. PERPHENAZINE [Suspect]
     Indication: SCHIZOPHRENIA
  3. ARIPIPRAZOLE [Suspect]
     Indication: SCHIZOPHRENIA
  4. AMISULPRIDE [Suspect]
     Indication: SCHIZOPHRENIA

REACTIONS (3)
  - URINARY RETENTION [None]
  - LARGE INTESTINAL OBSTRUCTION [None]
  - BENIGN PROSTATIC HYPERPLASIA [None]
